FAERS Safety Report 8903880 (Version 2)
Quarter: 2012Q4

REPORT INFORMATION
  Report Type: 
  Country: US (occurrence: US)
  Receive Date: 20121113
  Receipt Date: 20121213
  Transmission Date: 20130627
  Serious: No
  Sender: FDA-Public Use
  Company Number: US-ASTRAZENECA-2012SE71547

PATIENT
  Age: 69 Year
  Sex: Male

DRUGS (4)
  1. CRESTOR [Suspect]
     Route: 048
  2. CRESTOR [Suspect]
     Dosage: GENERIC
     Route: 048
  3. DIOVAN [Suspect]
     Dosage: GENERIC
     Route: 065
  4. TRICOR [Concomitant]

REACTIONS (3)
  - Adverse event [Unknown]
  - Urticaria [Unknown]
  - Drug ineffective [Unknown]
